FAERS Safety Report 4897616-5 (Version None)
Quarter: 2006Q1

REPORT INFORMATION
  Report Type: 
  Country: None (occurrence: None)
  Receive Date: 20060201
  Receipt Date: 20060123
  Transmission Date: 20060701
  Serious: Yes (Death)
  Sender: FDA-Public Use
  Company Number: JP-JNJFOC-20051006226

PATIENT
  Age: 52 Year
  Sex: Male

DRUGS (7)
  1. DUROTEP [Suspect]
     Route: 062
  2. DUROTEP [Suspect]
     Route: 062
  3. DUROTEP [Suspect]
     Route: 062
  4. DUROTEP [Suspect]
     Route: 062
  5. DUROTEP [Suspect]
     Route: 062
  6. DUROTEP [Suspect]
     Indication: CANCER PAIN
     Route: 062
  7. MORPHINE [Concomitant]

REACTIONS (3)
  - CONFUSIONAL STATE [None]
  - MULTIPLE MYELOMA [None]
  - RESTLESSNESS [None]
